FAERS Safety Report 23249564 (Version 1)
Quarter: 2023Q4

REPORT INFORMATION
  Report Type: Report from Study
  Country: CN (occurrence: CN)
  Receive Date: 20231201
  Receipt Date: 20231201
  Transmission Date: 20240110
  Serious: Yes (Hospitalization, Congenital Anomaly, Other)
  Sender: FDA-Public Use
  Company Number: CN-GILEAD-2023-0652849

PATIENT
  Age: 1 Day
  Sex: Male
  Weight: 2.05 kg

DRUGS (2)
  1. TENOFOVIR ALAFENAMIDE [Suspect]
     Active Substance: TENOFOVIR ALAFENAMIDE
     Indication: Product used for unknown indication
     Dosage: 25 MG, QD
     Route: 064
     Dates: start: 20220303
  2. EUTHYROX [Concomitant]
     Active Substance: LEVOTHYROXINE SODIUM
     Dosage: 100 MG, QD
     Route: 064

REACTIONS (9)
  - Neonatal respiratory distress syndrome [Recovered/Resolved]
  - Neonatal infection [Recovered/Resolved]
  - Low birth weight baby [Recovered/Resolved]
  - Premature baby [Recovered/Resolved]
  - Hyperbilirubinaemia neonatal [Recovered/Resolved]
  - Atrial septal defect [Recovered/Resolved]
  - Patent ductus arteriosus [Recovered/Resolved]
  - Anaemia neonatal [Recovered/Resolved]
  - Foetal exposure during pregnancy [Recovered/Resolved]

NARRATIVE: CASE EVENT DATE: 20220420
